FAERS Safety Report 9431419 (Version 2)
Quarter: 2013Q3

REPORT INFORMATION
  Report Type: Spontaneous
  Country: US (occurrence: US)
  Receive Date: 20130730
  Receipt Date: 20130807
  Transmission Date: 20140515
  Serious: Yes (Death)
  Sender: FDA-Public Use
  Company Number: US-FRI-1000047164

PATIENT
  Sex: Female

DRUGS (11)
  1. BYSTOLIC [Suspect]
     Indication: HYPERTENSION
     Dosage: 10MG
     Route: 048
     Dates: start: 20090629, end: 2013
  2. AMITRIPTYLINE [Concomitant]
     Indication: DEPRESSION
     Dates: end: 2013
  3. LIPITOR [Concomitant]
     Indication: BLOOD CHOLESTEROL INCREASED
     Dates: end: 2013
  4. CALCIUM ACETATE [Concomitant]
     Indication: NEPHROPATHY
     Dates: end: 2013
  5. FLUOXETINE [Concomitant]
     Indication: DEPRESSION
     Dates: end: 2013
  6. GABAPENTIN [Concomitant]
     Indication: NEUROPATHY PERIPHERAL
     Dates: end: 2013
  7. SYNTHROID [Concomitant]
     Indication: HYPOTHYROIDISM
     Dates: end: 2013
  8. MTV [Concomitant]
     Indication: SUPPLEMENTATION THERAPY
     Dates: end: 2013
  9. PRILOSEC [Concomitant]
     Indication: GASTROOESOPHAGEAL REFLUX DISEASE
     Dates: end: 2013
  10. ZETIA [Concomitant]
     Indication: BLOOD CHOLESTEROL INCREASED
     Dates: end: 2013
  11. INSULIN [Concomitant]
     Indication: DIABETES MELLITUS
     Dates: end: 2013

REACTIONS (1)
  - Azotaemia [Fatal]
